FAERS Safety Report 9492758 (Version 3)
Quarter: 2014Q2

REPORT INFORMATION
  Report Type: Spontaneous
  Country: US (occurrence: US)
  Receive Date: 20130830
  Receipt Date: 20140505
  Transmission Date: 20141212
  Serious: Yes (Hospitalization)
  Sender: FDA-Public Use
  Company Number: US-GLAXOSMITHKLINE-A1039738A

PATIENT
  Age: 72 Year
  Sex: Male

DRUGS (1)
  1. ARIXTRA [Suspect]
     Indication: PHLEBITIS
     Dosage: 10MG UNKNOWN
     Dates: start: 20120131

REACTIONS (5)
  - Phlebitis [Unknown]
  - Cerebrovascular accident [Unknown]
  - Investigation [Unknown]
  - Malaise [Unknown]
  - Aphasia [Unknown]
